FAERS Safety Report 10033084 (Version 1)
Quarter: 2014Q1

REPORT INFORMATION
  Report Type: Spontaneous
  Country: US (occurrence: US)
  Receive Date: 20140324
  Receipt Date: 20140324
  Transmission Date: 20141002
  Serious: Yes (Hospitalization)
  Sender: FDA-Public Use
  Company Number: CHPA2014US004213

PATIENT
  Age: 72 Year
  Sex: Female

DRUGS (1)
  1. VOLTAREN GEL [Suspect]
     Indication: OSTEOARTHRITIS
     Dosage: UNK
     Route: 061
     Dates: start: 2013, end: 2013

REACTIONS (3)
  - Road traffic accident [Unknown]
  - Rib fracture [Recovering/Resolving]
  - Musculoskeletal chest pain [Not Recovered/Not Resolved]
